FAERS Safety Report 10252300 (Version 1)
Quarter: 2014Q2

REPORT INFORMATION
  Report Type: Spontaneous
  Country: FR (occurrence: FR)
  Receive Date: 20140623
  Receipt Date: 20140623
  Transmission Date: 20141212
  Serious: Yes (Hospitalization)
  Sender: FDA-Public Use
  Company Number: PHHY2014FR076873

PATIENT
  Age: 65 Year
  Sex: Female

DRUGS (5)
  1. ACLASTA [Suspect]
     Indication: OSTEOPOROSIS
     Dosage: 5 MG, UNK
     Route: 042
     Dates: start: 2010
  2. ACLASTA [Suspect]
     Dosage: UNK UKN, UNK
     Route: 042
  3. ACLASTA [Suspect]
     Dosage: UNK UKN, UNK
     Route: 042
  4. FOSAMAX [Suspect]
     Indication: OSTEOPOROSIS
     Dosage: UNK UKN, UNK
     Route: 048
     Dates: start: 2003, end: 2010
  5. DIDRONEL /01189301/ [Suspect]
     Indication: OSTEOPOROSIS
     Dosage: UNK UKN, UNK
     Dates: start: 2001, end: 2003

REACTIONS (1)
  - Osteonecrosis [Unknown]
